FAERS Safety Report 4876115-0 (Version None)
Quarter: 2006Q1

REPORT INFORMATION
  Report Type: 
  Country: None (occurrence: None)
  Receive Date: 20060106
  Receipt Date: 20060106
  Transmission Date: 20060701
  Serious: Yes (Life-Threatening)
  Sender: FDA-Public Use
  Company Number: None

PATIENT
  Age: 44 Year
  Sex: Male
  Weight: 106.5953 kg

DRUGS (1)
  1. GEMZAR [Suspect]
     Dosage: 1800 MG WEEKLY
     Dates: start: 20050311, end: 20050701

REACTIONS (1)
  - LUNG DISORDER [None]
